FAERS Safety Report 7419437-1 (Version None)
Quarter: 2011Q2

REPORT INFORMATION
  Report Type: 
  Country: None (occurrence: None)
  Receive Date: 20110418
  Receipt Date: 20110408
  Transmission Date: 20111010
  Serious: Yes (Other)
  Sender: FDA-Public Use
  Company Number: BE-AMGEN-BELSP2011017316

PATIENT
  Age: 37 Year
  Sex: Male

DRUGS (6)
  1. MEDROL [Suspect]
     Dosage: 16 MG, 1X/DAY
     Route: 048
  2. VOLTAREN [Suspect]
     Dosage: 75 MG, 2X/DAY
     Route: 048
  3. COVERSYL                           /00790701/ [Concomitant]
     Indication: HYPERTENSION
     Dosage: 5 MG, 1X/DAY
     Route: 048
  4. DURAGESIC-100 [Concomitant]
     Dosage: 100 UG/24H, UNK
     Route: 062
  5. ENBREL [Suspect]
     Indication: ANKYLOSING SPONDYLITIS
     Dosage: 50 MG, WEEKLY
     Route: 058
     Dates: start: 20060905, end: 20110324
  6. ALDACTONE [Concomitant]
     Indication: HYPERTENSION
     Dosage: 50 MG, 1X/DAY
     Route: 048

REACTIONS (1)
  - CONGESTIVE CARDIOMYOPATHY [None]
